FAERS Safety Report 5348503-X (Version None)
Quarter: 2007Q2

REPORT INFORMATION
  Report Type: 
  Country: None (occurrence: None)
  Receive Date: 20070605
  Receipt Date: 20070522
  Transmission Date: 20071010
  Serious: Yes (Hospitalization)
  Sender: FDA-Public Use
  Company Number: S07-FRA-02395-01

PATIENT
  Age: 78 Year
  Sex: Female
  Weight: 45 kg

DRUGS (9)
  1. MEMANTINE HCL [Suspect]
     Dosage: 0.5 BID PO
     Route: 048
     Dates: start: 20061213, end: 20070213
  2. STABLON (TIANEPTINE) [Suspect]
     Dosage: 1 BID PO
     Route: 048
     Dates: start: 20061213, end: 20070213
  3. STABLON (TIANEPTINE) [Suspect]
     Dosage: 1 QD PO
     Route: 048
     Dates: start: 20070101
  4. ARICEPT [Suspect]
     Dosage: 10 MG QD PO
     Route: 048
     Dates: start: 20061213, end: 20070204
  5. SECTRAL [Concomitant]
  6. RIFADIN [Concomitant]
  7. OFLOXACIN [Concomitant]
  8. MOPRAL (OMEPRAZOLE) [Concomitant]
  9. LEVOTHYROXINE SODIUM [Concomitant]

REACTIONS (7)
  - AORTIC DISORDER [None]
  - AORTIC STENOSIS [None]
  - BRAIN NATRIURETIC PEPTIDE INCREASED [None]
  - MALAISE [None]
  - ORTHOSTATIC HYPOTENSION [None]
  - PYELONEPHRITIS [None]
  - SJOGREN'S SYNDROME [None]
